FAERS Safety Report 5584438-5 (Version None)
Quarter: 2008Q1

REPORT INFORMATION
  Report Type: 
  Country: None (occurrence: None)
  Receive Date: 20080108
  Receipt Date: 20071227
  Transmission Date: 20080703
  Serious: Yes (Other)
  Sender: FDA-Public Use
  Company Number: JP-JNJFOC-20071206330

PATIENT
  Sex: Male
  Weight: 65 kg

DRUGS (23)
  1. ITRIZOLE [Suspect]
     Indication: FEBRILE NEUTROPENIA
     Route: 048
  2. ITRIZOLE [Suspect]
     Route: 041
  3. VANCOMYCIN [Concomitant]
     Route: 065
  4. OMEPRAL [Concomitant]
     Route: 042
  5. OMEPRAL [Concomitant]
     Indication: GASTROINTESTINAL HAEMORRHAGE
     Route: 042
  6. KAYTWO N [Concomitant]
     Route: 042
  7. FINIBAX [Concomitant]
     Route: 041
  8. ADONA [Concomitant]
     Indication: GASTROINTESTINAL HAEMORRHAGE
     Route: 042
  9. BROACT [Concomitant]
     Indication: FEBRILE NEUTROPENIA
     Route: 042
  10. MEROPEN [Concomitant]
     Route: 042
  11. MEROPEN [Concomitant]
     Route: 042
  12. MEROPEN [Concomitant]
     Route: 042
  13. GRAN [Concomitant]
     Route: 058
  14. NEUART [Concomitant]
     Route: 042
  15. PASIL [Concomitant]
     Route: 041
  16. PASIL [Concomitant]
     Route: 042
  17. NISSEKI POLYGLOBIN-N [Concomitant]
     Route: 042
  18. NEOMINOPHAGEN C [Concomitant]
     Indication: ALLERGIC TRANSFUSION REACTION
     Route: 042
  19. GASTER [Concomitant]
     Route: 042
  20. GASTER [Concomitant]
     Indication: GASTROINTESTINAL HAEMORRHAGE
     Route: 042
  21. KYTRIL [Concomitant]
     Route: 042
  22. CYLOCIDE [Concomitant]
     Route: 042
  23. IDAMYCIN [Concomitant]
     Route: 042

REACTIONS (4)
  - FEBRILE NEUTROPENIA [None]
  - HYPOKALAEMIA [None]
  - LIVER DISORDER [None]
  - REFRACTORINESS TO PLATELET TRANSFUSION [None]
